FAERS Safety Report 20074094 (Version 1)
Quarter: 2021Q4

REPORT INFORMATION
  Report Type: Spontaneous
  Country: MY (occurrence: MY)
  Receive Date: 20211116
  Receipt Date: 20211116
  Transmission Date: 20220303
  Serious: Yes (Other)
  Sender: FDA-Public Use
  Company Number: MY-MLMSERVICE-20211027-3190260-1

PATIENT
  Age: 25 Year
  Sex: Male

DRUGS (9)
  1. METHYLPREDNISOLONE SODIUM SUCCINATE [Suspect]
     Active Substance: METHYLPREDNISOLONE SODIUM SUCCINATE
     Indication: Sympathetic ophthalmia
     Dosage: 1 G, 1X/DAY
     Route: 042
     Dates: start: 201905
  2. PREDNISOLONE [Suspect]
     Active Substance: PREDNISOLONE
     Indication: Sympathetic ophthalmia
     Dosage: 50 MG, 1X/DAY (1 MG/KG/DAY)
     Route: 048
     Dates: start: 201905
  3. PREDNISOLONE [Suspect]
     Active Substance: PREDNISOLONE
     Dosage: UNK (SLOWLY TAPERED)
     Route: 048
     Dates: start: 201906
  4. PREDNISOLONE [Suspect]
     Active Substance: PREDNISOLONE
     Dosage: 10 MG
     Route: 048
     Dates: start: 2019
  5. DEXAMETHASONE [Suspect]
     Active Substance: DEXAMETHASONE
     Indication: Sympathetic ophthalmia
     Dosage: 0.1 % (EVERY 2 HOURS)
     Route: 061
     Dates: start: 201905
  6. DEXAMETHASONE [Suspect]
     Active Substance: DEXAMETHASONE
     Dosage: UNK (SLOWLY TAPERED)
     Route: 061
     Dates: start: 201906
  7. DEXAMETHASONE [Suspect]
     Active Substance: DEXAMETHASONE
     Dosage: UNK, 1X/DAY
     Route: 061
     Dates: start: 2019
  8. AZATHIOPRINE [Concomitant]
     Active Substance: AZATHIOPRINE
     Indication: Sympathetic ophthalmia
     Dosage: 50 MG, 2X/DAY (2 MG/KG/DAY)
     Route: 048
     Dates: start: 201906, end: 201912
  9. ATROPINE [Concomitant]
     Active Substance: ATROPINE
     Indication: Sympathetic ophthalmia
     Dosage: 1 %, 3X/DAY
     Route: 061
     Dates: start: 201905

REACTIONS (4)
  - Intraocular pressure increased [Unknown]
  - Cataract subcapsular [Unknown]
  - Immunosuppression [Unknown]
  - Tuberculous pleurisy [Recovering/Resolving]

NARRATIVE: CASE EVENT DATE: 20190101
